FAERS Safety Report 18611744 (Version 1)
Quarter: 2020Q4

REPORT INFORMATION
  Report Type: Spontaneous
  Country: US (occurrence: US)
  Receive Date: 20201214
  Receipt Date: 20201214
  Transmission Date: 20210114
  Serious: No
  Sender: FDA-Public Use
  Company Number: None

PATIENT
  Age: 45 Year
  Sex: Female

DRUGS (7)
  1. ERGOCALCIFER CAP [Concomitant]
  2. PHENTERMINE. [Concomitant]
     Active Substance: PHENTERMINE
  3. ENBREL [Suspect]
     Active Substance: ETANERCEPT
     Indication: RHEUMATOID ARTHRITIS
     Dosage: ?          OTHER FREQUENCY:QWK;?
     Route: 058
     Dates: start: 20191217
  4. FERROUS GLUC [Concomitant]
  5. VITAMIN D [Concomitant]
     Active Substance: VITAMIN D NOS
  6. ALBUTEROL. [Concomitant]
     Active Substance: ALBUTEROL
  7. OMERPRAZOLE [Concomitant]
     Active Substance: OMEPRAZOLE

REACTIONS (5)
  - Therapy interrupted [None]
  - Rheumatoid arthritis [None]
  - Knee operation [None]
  - COVID-19 [None]
  - Injection site pain [None]

NARRATIVE: CASE EVENT DATE: 20200918
